FAERS Safety Report 23790033 (Version 2)
Quarter: 2024Q2

REPORT INFORMATION
  Report Type: Report from Study
  Country: US (occurrence: US)
  Receive Date: 20240426
  Receipt Date: 20240602
  Transmission Date: 20240716
  Serious: No
  Sender: FDA-Public Use
  Company Number: US-AstraZeneca-CH-00610345A

PATIENT

DRUGS (1)
  1. ULTOMIRIS [Suspect]
     Active Substance: RAVULIZUMAB-CWVZ
     Indication: Product used for unknown indication
     Dosage: UNK
     Route: 065

REACTIONS (5)
  - Ocular discomfort [Not Recovered/Not Resolved]
  - Lethargy [Recovering/Resolving]
  - Dysstasia [Unknown]
  - Musculoskeletal stiffness [Unknown]
  - Fatigue [Recovering/Resolving]
